FAERS Safety Report 19766170 (Version 7)
Quarter: 2022Q3

REPORT INFORMATION
  Report Type: Report from Study
  Country: AR (occurrence: AR)
  Receive Date: 20210830
  Receipt Date: 20220630
  Transmission Date: 20221027
  Serious: Yes (Death, Hospitalization, Other)
  Sender: FDA-Public Use
  Company Number: AR-NOVARTISPH-NVSC2021AR172749

PATIENT
  Age: 67 Year
  Sex: Female

DRUGS (4)
  1. KISQALI [Suspect]
     Active Substance: RIBOCICLIB
     Indication: Breast cancer metastatic
     Dosage: 600 MG, QD
     Route: 048
     Dates: start: 20210722
  2. KISQALI [Suspect]
     Active Substance: RIBOCICLIB
     Dosage: 600 MG, QD
     Route: 048
     Dates: start: 20210723, end: 20220521
  3. OMEPRAZOLE [Concomitant]
     Active Substance: OMEPRAZOLE
     Indication: Product used for unknown indication
     Dosage: UNK
     Route: 065
  4. ENALAPRIL MALEATE [Concomitant]
     Active Substance: ENALAPRIL MALEATE
     Indication: Product used for unknown indication
     Dosage: HALF OF 10 MG, BEFORE SLEEPING
     Route: 065
     Dates: start: 202010

REACTIONS (22)
  - Malignant neoplasm progression [Fatal]
  - Breast cancer [Fatal]
  - Pulmonary oedema [Fatal]
  - Dyspnoea [Fatal]
  - Hypertension [Unknown]
  - Pain [Unknown]
  - Gait disturbance [Unknown]
  - Pyrexia [Unknown]
  - Malaise [Unknown]
  - Mobility decreased [Unknown]
  - Loss of consciousness [Unknown]
  - Feeling abnormal [Unknown]
  - Condition aggravated [Unknown]
  - Breast discharge [Unknown]
  - Blister [Unknown]
  - Finger deformity [Unknown]
  - Memory impairment [Unknown]
  - Nausea [Unknown]
  - Abdominal pain upper [Unknown]
  - Dizziness [Unknown]
  - Peripheral swelling [Unknown]
  - Breast ulceration [Unknown]

NARRATIVE: CASE EVENT DATE: 20210726
